FAERS Safety Report 9788409 (Version 1)
Quarter: 2013Q4

REPORT INFORMATION
  Report Type: Report from Study
  Country: DE (occurrence: DE)
  Receive Date: 20131230
  Receipt Date: 20131230
  Transmission Date: 20140711
  Serious: Yes (Hospitalization)
  Sender: FDA-Public Use
  Company Number: DE-ABBVIE-13P-062-1182327-00

PATIENT
  Age: 23 Year
  Sex: Female
  Weight: 55 kg

DRUGS (4)
  1. HUMIRA [Suspect]
     Indication: CROHN^S DISEASE
     Route: 058
     Dates: start: 20101020, end: 201309
  2. PREDNISOLONE [Concomitant]
     Indication: CROHN^S DISEASE
     Dates: end: 201010
  3. PREDNISOLONE [Concomitant]
     Dosage: 25-50 MG OD
     Dates: start: 201310, end: 201311
  4. VITAMIN B12 [Concomitant]
     Indication: PRODUCT USED FOR UNKNOWN INDICATION

REACTIONS (5)
  - Intestinal stenosis [Recovered/Resolved]
  - Gastrointestinal disorder [Unknown]
  - Fistula [Unknown]
  - Fungal infection [Recovered/Resolved]
  - Abdominal abscess [Unknown]
